FAERS Safety Report 5226095-3 (Version None)
Quarter: 2007Q1

REPORT INFORMATION
  Report Type: 
  Country: None (occurrence: None)
  Receive Date: 20070201
  Receipt Date: 20070123
  Transmission Date: 20070707
  Serious: Yes (Death, Hospitalization)
  Sender: FDA-Public Use
  Company Number: HQWYE148219JUL06

PATIENT
  Sex: Male
  Weight: 74 kg

DRUGS (13)
  1. MYLOTARG [Suspect]
     Indication: T-CELL TYPE ACUTE LEUKAEMIA
     Route: 041
     Dates: start: 20060403, end: 20060403
  2. MYLOTARG [Suspect]
     Route: 041
     Dates: start: 20060509, end: 20060509
  3. BACTRIM [Concomitant]
     Indication: PROPHYLAXIS
     Route: 048
     Dates: start: 20060403, end: 20060605
  4. ACINON [Concomitant]
     Indication: PROPHYLAXIS
     Route: 048
     Dates: start: 20060403, end: 20060605
  5. ASPARTATE CALCIUM [Concomitant]
     Indication: PROPHYLAXIS
     Route: 048
     Dates: start: 20051215, end: 20060619
  6. VITAJECT [Concomitant]
     Indication: PROPHYLAXIS
     Dosage: UNKNOWN DOSE/DAY
     Route: 041
     Dates: start: 20060414, end: 20060605
  7. ALFAROL [Concomitant]
     Indication: PROPHYLAXIS
     Route: 048
     Dates: start: 20051215, end: 20060619
  8. FRAGMIN [Concomitant]
     Indication: PROPHYLAXIS
     Route: 041
     Dates: start: 20060406, end: 20060420
  9. FRAGMIN [Concomitant]
     Route: 041
     Dates: start: 20060508, end: 20060526
  10. ZOVIRAX [Concomitant]
     Indication: PROPHYLAXIS
     Route: 041
     Dates: start: 20060413, end: 20060418
  11. GRANISETRON  HCL [Concomitant]
     Indication: PROPHYLAXIS
     Route: 042
     Dates: start: 20060509, end: 20060509
  12. ITRIZOLE [Concomitant]
     Indication: PROPHYLAXIS
     Route: 048
     Dates: start: 20060403, end: 20060411
  13. BONALON [Concomitant]
     Indication: PROPHYLAXIS
     Route: 048
     Dates: start: 20051215, end: 20060119

REACTIONS (6)
  - NEUTROPENIA [None]
  - PERFORMANCE STATUS DECREASED [None]
  - PLEURISY [None]
  - PNEUMONIA [None]
  - VENOOCCLUSIVE LIVER DISEASE [None]
  - WHITE BLOOD CELL COUNT DECREASED [None]
